FAERS Safety Report 17558453 (Version 2)
Quarter: 2020Q1

REPORT INFORMATION
  Report Type: Spontaneous
  Country: BR (occurrence: BR)
  Receive Date: 20200318
  Receipt Date: 20200330
  Transmission Date: 20200409
  Serious: Yes (Hospitalization, Disabling)
  Sender: FDA-Public Use
  Company Number: BR-CELGENEUS-BRA-20200305792

PATIENT
  Age: 81 Year
  Sex: Male
  Weight: 52.8 kg

DRUGS (29)
  1. SODIUM CHLORIDE. [Concomitant]
     Active Substance: SODIUM CHLORIDE
     Dosage: .9 PERCENT
     Route: 041
     Dates: start: 20180510, end: 20180510
  2. SODIUM CHLORIDE. [Concomitant]
     Active Substance: SODIUM CHLORIDE
     Dosage: .9 PERCENT
     Route: 041
     Dates: start: 20180529, end: 20180530
  3. DOXYCYCLINE. [Concomitant]
     Active Substance: DOXYCYCLINE
     Indication: URINARY TRACT INFECTION
     Dosage: 400 MILLIGRAM
     Route: 048
     Dates: start: 20200129, end: 20200210
  4. VENETOCLAX. [Concomitant]
     Active Substance: VENETOCLAX
     Dosage: 200 MILLIGRAM
     Route: 048
     Dates: start: 20180309, end: 20180309
  5. BISOPROLOL [Concomitant]
     Active Substance: BISOPROLOL
     Indication: PROPHYLAXIS
     Dosage: 7.5 MILLIGRAM
     Route: 048
     Dates: start: 20180315
  6. FILGRASTIM [Concomitant]
     Active Substance: FILGRASTIM
     Indication: NEUTROPENIA
     Dosage: 300 MICROGRAM
     Route: 058
     Dates: start: 20181112
  7. SODIUM CHLORIDE. [Concomitant]
     Active Substance: SODIUM CHLORIDE
     Dosage: .9 PERCENT
     Route: 041
     Dates: start: 20180306, end: 20180308
  8. SODIUM CHLORIDE. [Concomitant]
     Active Substance: SODIUM CHLORIDE
     Dosage: .9 PERCENT
     Route: 041
     Dates: start: 20180311, end: 20180313
  9. LEVOFLOXACIN. [Concomitant]
     Active Substance: LEVOFLOXACIN
     Indication: URINARY TRACT INFECTION
     Dosage: 400 MILLIGRAM
     Route: 048
     Dates: start: 20200210, end: 20200217
  10. ROSUVASTATIN CALCIUM. [Concomitant]
     Active Substance: ROSUVASTATIN CALCIUM
     Indication: HYPERLIPIDAEMIA
     Dosage: 10 MILLIGRAM
     Route: 048
     Dates: start: 2017
  11. DEXTROSE. [Concomitant]
     Active Substance: DEXTROSE
     Indication: PROPHYLAXIS
     Dosage: 5 PERCENT IN WATER
     Route: 041
     Dates: start: 20180509, end: 20180510
  12. VORICONAZOLE. [Concomitant]
     Active Substance: VORICONAZOLE
     Indication: ANTIFUNGAL PROPHYLAXIS
     Dosage: 400 MILLIGRAM
     Route: 048
     Dates: start: 20200220
  13. AZITHROMYCIN ANHYDROUS. [Concomitant]
     Active Substance: AZITHROMYCIN ANHYDROUS
     Indication: URINARY TRACT INFECTION
     Dosage: 1000 MILLIGRAM
     Route: 048
     Dates: start: 20200129, end: 20200129
  14. ZOLPIDEM [Concomitant]
     Active Substance: ZOLPIDEM TARTRATE
     Indication: INSOMNIA
     Dosage: 100 MILLIGRAM
     Route: 048
     Dates: start: 20191216, end: 20200304
  15. VENETOCLAX. [Concomitant]
     Active Substance: VENETOCLAX
     Dosage: 50 MILLIGRAM
     Route: 048
     Dates: start: 20180430, end: 20200303
  16. GLUCOSE/REGULAR INSULIN [Concomitant]
     Indication: PROPHYLAXIS
     Dosage: 50% GLUCOSE SOLUTION WITH 10 U REGULAR INSULIN
     Route: 041
     Dates: start: 20180208, end: 20180208
  17. ALLOPURINOL. [Concomitant]
     Active Substance: ALLOPURINOL
     Indication: PROPHYLAXIS
     Dosage: 100 MILLIGRAM
     Route: 048
     Dates: start: 20180305, end: 20180420
  18. SODIUM CHLORIDE. [Concomitant]
     Active Substance: SODIUM CHLORIDE
     Dosage: .9 PERCENT
     Route: 041
     Dates: start: 20180603, end: 20180604
  19. SODIUM CHLORIDE. [Concomitant]
     Active Substance: SODIUM CHLORIDE
     Dosage: .9 PERCENT
     Route: 041
     Dates: start: 20180328, end: 20180328
  20. SODIUM CHLORIDE. [Concomitant]
     Active Substance: SODIUM CHLORIDE
     Dosage: .9 PERCENT
     Route: 041
     Dates: start: 20180209, end: 20180211
  21. AZACITIDINE. [Suspect]
     Active Substance: AZACITIDINE
     Dosage: 37.5 MILLIGRAM/SQ. METER
     Route: 058
     Dates: start: 20180814
  22. VENETOCLAX. [Concomitant]
     Active Substance: VENETOCLAX
     Dosage: 100 MILLIGRAM
     Route: 048
     Dates: start: 20180308, end: 20180308
  23. SODIUM CHLORIDE. [Concomitant]
     Active Substance: SODIUM CHLORIDE
     Dosage: .9 PERCENT
     Route: 041
     Dates: start: 20180530, end: 20180531
  24. SODIUM CHLORIDE. [Concomitant]
     Active Substance: SODIUM CHLORIDE
     Dosage: .9 PERCENT
     Route: 041
     Dates: start: 20180602, end: 20180602
  25. AZACITIDINE. [Suspect]
     Active Substance: AZACITIDINE
     Indication: ACUTE MYELOID LEUKAEMIA
     Dosage: 75 MILLIGRAM/SQ. METER
     Route: 058
     Dates: start: 20180307, end: 20180627
  26. VENETOCLAX. [Concomitant]
     Active Substance: VENETOCLAX
     Indication: ACUTE MYELOID LEUKAEMIA
     Dosage: 50 MILLIGRAM
     Route: 048
     Dates: start: 20180307, end: 20180307
  27. ISOSORBIDE. [Concomitant]
     Active Substance: ISOSORBIDE
     Indication: PROPHYLAXIS
     Dosage: 30 MILLIGRAM
     Route: 048
     Dates: start: 20180328
  28. SODIUM CHLORIDE. [Concomitant]
     Active Substance: SODIUM CHLORIDE
     Indication: PROPHYLAXIS
     Dosage: .9 PERCENT
     Route: 041
     Dates: start: 20180220, end: 20180226
  29. CEFTRIAXONE. [Concomitant]
     Active Substance: CEFTRIAXONE
     Indication: URINARY TRACT INFECTION
     Dosage: 1 GRAM
     Route: 048
     Dates: start: 20200129, end: 20200129

REACTIONS (1)
  - Urinary tract infection [Not Recovered/Not Resolved]

NARRATIVE: CASE EVENT DATE: 20200303
